FAERS Safety Report 25841588 (Version 1)
Quarter: 2025Q3

REPORT INFORMATION
  Report Type: Spontaneous
  Country: CO (occurrence: CO)
  Receive Date: 20250924
  Receipt Date: 20250924
  Transmission Date: 20251021
  Serious: Yes (Hospitalization)
  Sender: NOVO NORDISK
  Company Number: CO-NOVOPROD-1521965

PATIENT
  Age: 36 Year
  Sex: Female
  Weight: 84 kg

DRUGS (2)
  1. SAXENDA [Suspect]
     Active Substance: LIRAGLUTIDE
     Indication: Obesity
     Dosage: 0.6 MG, QD
     Route: 058
     Dates: start: 20250501, end: 20250618
  2. DIANE (CYPROTERONE ACETATE\ETHINYL ESTRADIOL) [Concomitant]
     Active Substance: CYPROTERONE ACETATE\ETHINYL ESTRADIOL
     Indication: Polycystic ovaries
     Route: 048
     Dates: start: 20250501, end: 20250618

REACTIONS (3)
  - Pneumonia [Recovered/Resolved]
  - Discouragement [Recovered/Resolved]
  - Influenza [Recovered/Resolved]

NARRATIVE: CASE EVENT DATE: 20250501
